FAERS Safety Report 7973885-X (Version None)
Quarter: 2011Q4

REPORT INFORMATION
  Report Type: 
  Country: None (occurrence: None)
  Receive Date: 20111213
  Receipt Date: 20111207
  Transmission Date: 20120403
  Serious: Yes (Death, Other)
  Sender: FDA-Public Use
  Company Number: US-BRISTOL-MYERS SQUIBB COMPANY-16276776

PATIENT
  Age: 62 Year
  Sex: Female
  Weight: 104 kg

DRUGS (5)
  1. CARBOPLATIN [Suspect]
     Indication: NON-SMALL CELL LUNG CANCER
     Dosage: 1 DF: 6 AUC,Q21DAYS PER CYCLE,CYC 2 WITH 25% DOSE DECREASE,DISC ON 04NOV11
     Route: 042
     Dates: start: 20110606, end: 20110815
  2. ONDANSETRON HYDROCHLORIDE [Concomitant]
  3. PACLITAXEL [Suspect]
     Indication: NON-SMALL CELL LUNG CANCER
     Dosage: Q21DAYS PER CYCLE,DISC ON 04NOV11
     Route: 042
     Dates: start: 20110606, end: 20110815
  4. BEVACIZUMAB [Suspect]
     Indication: NON-SMALL CELL LUNG CANCER
     Dosage: 06JUN11-15AUG;71D;Q1D/CYC;09SEP11-18OCT;40D;15MG/KG,D1 EVERY 21 D/CYC,3 DOSE,DISC ON 04NOV,MAIN THPY
     Route: 042
     Dates: start: 20110606, end: 20111018
  5. MULTI-VITAMINS [Concomitant]

REACTIONS (3)
  - NEOPLASM MALIGNANT [None]
  - CARDIAC FAILURE CONGESTIVE [None]
  - CARDIOMYOPATHY [None]
